FAERS Safety Report 15880857 (Version 8)
Quarter: 2019Q2

REPORT INFORMATION
  Report Type: Report from Study
  Country: CA (occurrence: CA)
  Receive Date: 20190128
  Receipt Date: 20190625
  Transmission Date: 20190711
  Serious: Yes (Other)
  Sender: FDA-Public Use
  Company Number: CA-BRISTOL-MYERS SQUIBB COMPANY-BMS-2018-118414

PATIENT
  Age: 47 Year
  Sex: Female

DRUGS (4)
  1. CHAMPIX [Suspect]
     Active Substance: VARENICLINE TARTRATE
     Indication: PRODUCT USED FOR UNKNOWN INDICATION
     Dosage: UNK
     Route: 065
  2. ROBAXACET [Suspect]
     Active Substance: ACETAMINOPHEN\METHOCARBAMOL
     Indication: PRODUCT USED FOR UNKNOWN INDICATION
     Dosage: 1 DF (REDUCED TO 2 TABLETS A DAY AS OPPOSED TO 10-12), UNK
     Route: 065
  3. ABATACEPT [Suspect]
     Active Substance: ABATACEPT
     Indication: PSORIATIC ARTHROPATHY
     Dosage: 750 MILLIGRAM, Q4WK
     Route: 042
     Dates: start: 20181129
  4. ABATACEPT [Suspect]
     Active Substance: ABATACEPT
     Indication: PRODUCT USED FOR UNKNOWN INDICATION
     Dosage: UNK, Q3WK
     Route: 042

REACTIONS (27)
  - Arthralgia [Recovered/Resolved]
  - Oropharyngeal pain [Recovered/Resolved]
  - Blood creatinine increased [Unknown]
  - Weight increased [Unknown]
  - Psoriatic arthropathy [Recovered/Resolved]
  - Nasal congestion [Recovered/Resolved]
  - Visual impairment [Unknown]
  - Loss of personal independence in daily activities [Unknown]
  - Inflammation [Unknown]
  - Hypothyroidism [Unknown]
  - Off label use [Unknown]
  - Restlessness [Unknown]
  - Condition aggravated [Unknown]
  - Stress [Not Recovered/Not Resolved]
  - Arthropathy [Unknown]
  - Cough [Recovered/Resolved]
  - Fatigue [Recovered/Resolved]
  - Dysgeusia [Unknown]
  - Musculoskeletal pain [Recovering/Resolving]
  - Post procedural discharge [Recovering/Resolving]
  - Nervousness [Unknown]
  - Muscle spasms [Recovering/Resolving]
  - Disturbance in attention [Not Recovered/Not Resolved]
  - Musculoskeletal discomfort [Unknown]
  - Rhinorrhoea [Unknown]
  - Insomnia [Unknown]
  - Headache [Recovered/Resolved]

NARRATIVE: CASE EVENT DATE: 20181130
